FAERS Safety Report 11939599 (Version 1)
Quarter: 2016Q1

REPORT INFORMATION
  Report Type: Spontaneous
  Country: US (occurrence: US)
  Receive Date: 20160122
  Receipt Date: 20160122
  Transmission Date: 20160526
  Serious: Yes (Death)
  Sender: FDA-Public Use
  Company Number: US-SA-2016SA010602

PATIENT
  Age: 66 Year
  Sex: Male

DRUGS (6)
  1. OSENI [Concomitant]
     Active Substance: ALOGLIPTIN BENZOATE\PIOGLITAZONE HYDROCHLORIDE
  2. LANTUS [Suspect]
     Active Substance: INSULIN GLARGINE
     Route: 065
  3. SOLOSTAR [Concomitant]
     Active Substance: DEVICE
  4. NOVOLOG [Concomitant]
     Active Substance: INSULIN ASPART
  5. METFORMIN [Concomitant]
     Active Substance: METFORMIN HYDROCHLORIDE
  6. LANTUS SOLOSTAR [Concomitant]
     Active Substance: INSULIN GLARGINE

REACTIONS (1)
  - Death [Fatal]
